FAERS Safety Report 10175049 (Version 2)
Quarter: 2014Q2

REPORT INFORMATION
  Report Type: Spontaneous
  Country: BR (occurrence: BR)
  Receive Date: 20140515
  Receipt Date: 20140617
  Transmission Date: 20141212
  Serious: Yes (Other)
  Sender: FDA-Public Use
  Company Number: BR-PFIZER INC-2014133993

PATIENT
  Age: 66 Year
  Sex: Female
  Weight: 81 kg

DRUGS (8)
  1. NEXIUM [Suspect]
     Indication: GASTRITIS
     Dosage: 40 MG, DAILY
     Route: 048
     Dates: start: 201312, end: 201403
  2. NEXIUM [Suspect]
     Indication: OESOPHAGITIS
     Dosage: 40 MG, 2X/DAY
     Route: 048
     Dates: start: 201403
  3. NEXIUM [Suspect]
     Indication: HIATUS HERNIA
  4. ATENOLOL [Suspect]
     Indication: HYPERTENSION
     Dosage: 25 MG, DAILY
     Route: 048
     Dates: start: 2009
  5. CRESTOR [Suspect]
     Indication: BLOOD CHOLESTEROL INCREASED
     Dosage: 10 MG, DAILY
     Route: 048
     Dates: start: 2013
  6. LOSARTAN POTASSIUM [Concomitant]
     Indication: HYPERTENSION
     Dosage: 50 MG, DAILY
     Route: 048
     Dates: start: 2011, end: 20140515
  7. LOSARTAN POTASSIUM [Concomitant]
     Dosage: 50 MG, 2X/DAY
     Route: 048
     Dates: start: 20140516
  8. ANTI-INFLAMMATORY [Concomitant]
     Indication: DENTAL IMPLANTATION
     Dosage: UNK
     Route: 048
     Dates: start: 2004, end: 2014

REACTIONS (9)
  - Blood pressure increased [Unknown]
  - Drug ineffective [Unknown]
  - Off label use [Not Recovered/Not Resolved]
  - Blood cholesterol increased [Recovered/Resolved]
  - Gastritis [Recovered/Resolved]
  - Gastric polyps [Unknown]
  - Eructation [Not Recovered/Not Resolved]
  - Dyspnoea exertional [Not Recovered/Not Resolved]
  - Headache [Not Recovered/Not Resolved]
